FAERS Safety Report 12205505 (Version 1)
Quarter: 2016Q1

REPORT INFORMATION
  Report Type: Spontaneous
  Country: EG (occurrence: EG)
  Receive Date: 20160323
  Receipt Date: 20160323
  Transmission Date: 20160526
  Serious: Yes (Death)
  Sender: FDA-Public Use
  Company Number: PHHY2016EG037365

PATIENT
  Age: 9 Month
  Sex: Male
  Weight: 9 kg

DRUGS (2)
  1. SALBUTAMOL [Concomitant]
     Active Substance: ALBUTEROL
     Indication: BRONCHITIS
     Route: 065
  2. CEFTRIAXONE+LIDOCAINE SANDOZ [Suspect]
     Active Substance: CEFTRIAXONE
     Indication: BRONCHITIS
     Dosage: 0.5 G, QD
     Route: 030

REACTIONS (1)
  - Anaphylactic shock [Fatal]
